FAERS Safety Report 15330734 (Version 3)
Quarter: 2019Q2

REPORT INFORMATION
  Report Type: Report from Study
  Country: US (occurrence: US)
  Receive Date: 20180829
  Receipt Date: 20190430
  Transmission Date: 20190711
  Serious: Yes (Other)
  Sender: FDA-Public Use
  Company Number: PHHY2018US078356

PATIENT
  Age: 40 Year
  Sex: Female
  Weight: 60.77 kg

DRUGS (8)
  1. TURMERIC [Concomitant]
     Active Substance: HERBALS\TURMERIC
     Indication: PRODUCT USED FOR UNKNOWN INDICATION
     Dosage: 766MG TURMERIC AND 100MG CURCUMIN
     Route: 065
     Dates: start: 201706, end: 20180606
  2. GILENYA [Suspect]
     Active Substance: FINGOLIMOD HYDROCHLORIDE
     Dosage: 0.5 MG, QOD
     Route: 048
  3. GILENYA [Suspect]
     Active Substance: FINGOLIMOD HYDROCHLORIDE
     Indication: RELAPSING-REMITTING MULTIPLE SCLEROSIS
     Dosage: 0.5 MG, QD
     Route: 048
     Dates: start: 20150317
  4. VITAMIN D3 [Concomitant]
     Active Substance: CHOLECALCIFEROL
     Indication: VITAMIN D DEFICIENCY
     Dosage: UNK UNK, QD
     Route: 065
     Dates: start: 2013
  5. GILENYA [Suspect]
     Active Substance: FINGOLIMOD HYDROCHLORIDE
     Dosage: 0.5 MG, QD
     Route: 048
     Dates: end: 20180606
  6. PROBIOTIC [Concomitant]
     Active Substance: PROBIOTICS NOS
     Indication: PRODUCT USED FOR UNKNOWN INDICATION
     Dosage: 15 BILLIONS LIVE CULTURES ONCE DAILY
     Route: 065
     Dates: start: 20170628, end: 20180607
  7. ALPHA LIPOIC ACID [Concomitant]
     Active Substance: .ALPHA.-LIPOIC ACID
     Indication: PRODUCT USED FOR UNKNOWN INDICATION
     Dosage: 600 MG, BID
     Route: 065
     Dates: start: 201706, end: 20180606
  8. BIOTIN [Concomitant]
     Active Substance: BIOTIN
     Indication: PRODUCT USED FOR UNKNOWN INDICATION
     Dosage: 100 MG, QD
     Route: 065
     Dates: start: 20170628

REACTIONS (12)
  - Urinary retention [Unknown]
  - Micturition urgency [Unknown]
  - Fatigue [Recovering/Resolving]
  - Prescribed underdose [Unknown]
  - Liver function test increased [Unknown]
  - Alanine aminotransferase abnormal [Recovered/Resolved]
  - Anxiety [Unknown]
  - Abortion spontaneous [Recovered/Resolved]
  - Alanine aminotransferase increased [Recovered/Resolved]
  - Maternal exposure during pregnancy [Unknown]
  - Pollakiuria [Unknown]
  - Constipation [Unknown]

NARRATIVE: CASE EVENT DATE: 201806
